FAERS Safety Report 6630810-1 (Version None)
Quarter: 2010Q1

REPORT INFORMATION
  Report Type: 
  Country: None (occurrence: None)
  Receive Date: 20100310
  Receipt Date: 20100310
  Transmission Date: 20100710
  Serious: Yes (Hospitalization)
  Sender: FDA-Public Use
  Company Number: None

PATIENT
  Age: 60 Year
  Sex: Male
  Weight: 67.3 kg

DRUGS (3)
  1. OXALIPLATIN [Suspect]
     Indication: GASTRIC CANCER
     Dosage: 130 MG/M2 D1 IV
     Route: 042
     Dates: start: 20091204, end: 20100219
  2. CETUXIMAB [Suspect]
     Indication: GASTRIC CANCER
     Dosage: 250 MG/M2 D1,8,15 IV
     Route: 042
     Dates: start: 20091204, end: 20100219
  3. XELODA [Suspect]
     Indication: GASTRIC CANCER
     Dosage: 850 MG/M2 D1-14 BID PO
     Route: 048
     Dates: start: 20091204, end: 20100218

REACTIONS (9)
  - ALANINE AMINOTRANSFERASE ABNORMAL [None]
  - ASPARTATE AMINOTRANSFERASE ABNORMAL [None]
  - ASTHENIA [None]
  - BILIARY DILATATION [None]
  - BLOOD ALKALINE PHOSPHATASE ABNORMAL [None]
  - BLOOD BILIRUBIN ABNORMAL [None]
  - CHROMATURIA [None]
  - DISEASE PROGRESSION [None]
  - LYMPHADENOPATHY [None]
